FAERS Safety Report 4469424-0 (Version None)
Quarter: 2004Q4

REPORT INFORMATION
  Report Type: 
  Country: None (occurrence: None)
  Receive Date: 20041008
  Receipt Date: 20040805
  Transmission Date: 20050328
  Serious: Yes (Hospitalization)
  Sender: FDA-Public Use
  Company Number: US-BRISTOL-MYERS SQUIBB COMPANY-12663266

PATIENT
  Sex: Female

DRUGS (4)
  1. APROVEL [Suspect]
     Indication: HYPERTENSION
     Route: 048
     Dates: start: 20040510, end: 20040601
  2. TOREM [Concomitant]
  3. PLENDIL [Concomitant]
  4. CATAPRESAN [Concomitant]

REACTIONS (1)
  - RENAL FAILURE [None]
